FAERS Safety Report 15607291 (Version 1)
Quarter: 2018Q4

REPORT INFORMATION
  Report Type: Spontaneous
  Country: JP (occurrence: JP)
  Receive Date: 20181112
  Receipt Date: 20181112
  Transmission Date: 20190205
  Serious: Yes (Hospitalization)
  Sender: FDA-Public Use
  Company Number: JP-MYLANLABS-2018M1083869

PATIENT
  Age: 78 Year
  Sex: Male

DRUGS (6)
  1. CEFOZOPRAN [Suspect]
     Active Substance: CEFOZOPRAN
     Indication: PERITONITIS
     Dosage: DAY 33 TO DAY 39
     Route: 065
  2. CEFOTIAM [Suspect]
     Active Substance: CEFOTIAM
     Indication: PERITONITIS
     Route: 065
  3. CEFTRIAXONE. [Suspect]
     Active Substance: CEFTRIAXONE
     Indication: PERITONITIS
     Dosage: FROM DAY 1 TO DAY 8
     Route: 042
  4. MEROPENEM. [Suspect]
     Active Substance: MEROPENEM
     Indication: PERITONITIS
     Dosage: DAY 17 TO DAY 33; RE-INITIATED AFTER DISCONTINUATION OF CEFOTIAM
     Route: 065
  5. CEFOPERAZONE + SULBACTAM [Suspect]
     Active Substance: CEFOPERAZONE SODIUM\SULBACTAM
     Indication: PERITONITIS
     Dosage: INITIATED ON DAY 39
     Route: 065
  6. PIPERACILLIN/TAZOBACTAM [Suspect]
     Active Substance: PIPERACILLIN SODIUM\TAZOBACTAM SODIUM
     Indication: PERITONITIS
     Dosage: DAY 8 TO DAY 17
     Route: 065

REACTIONS (3)
  - Drug ineffective [Unknown]
  - Fungal peritonitis [Recovered/Resolved]
  - Candida infection [Recovered/Resolved]
